FAERS Safety Report 6490199-8 (Version None)
Quarter: 2009Q4

REPORT INFORMATION
  Report Type: 
  Country: None (occurrence: None)
  Receive Date: 20091211
  Receipt Date: 20091201
  Transmission Date: 20100525
  Serious: Yes (Other)
  Sender: FDA-Public Use
  Company Number: PHEH2006US02886

PATIENT
  Sex: Female
  Weight: 81.632 kg

DRUGS (14)
  1. ESTRADERM [Suspect]
     Indication: MENOPAUSE
     Dosage: 0.01 MG, UNK
     Route: 062
     Dates: start: 19890101, end: 19930101
  2. PREMARIN [Suspect]
     Indication: MENOPAUSE
     Dosage: 0.625 MG, UNK
     Route: 048
     Dates: start: 19960101, end: 20010101
  3. ESTRATEST [Suspect]
     Indication: MENOPAUSE
     Dosage: UNK
     Dates: start: 19950101, end: 19950101
  4. NORETHINDRONE-MESTRANOL [Suspect]
     Indication: MENOPAUSE
     Dosage: UNK
     Dates: start: 19870101, end: 19890101
  5. CIMETIDINE [Concomitant]
  6. NEURONTIN [Concomitant]
  7. HYDROCODONE [Concomitant]
  8. ZANTAC [Concomitant]
  9. TAGAMET [Concomitant]
  10. REGLAN [Concomitant]
  11. OXYBUTYNIN CHLORIDE [Concomitant]
  12. PROPRANOLOL [Concomitant]
  13. LOPID [Concomitant]
  14. NITROGLYCERIN [Concomitant]
     Indication: DYSPHAGIA

REACTIONS (56)
  - ABDOMINAL PAIN [None]
  - ABDOMINAL PAIN LOWER [None]
  - ABDOMINAL PAIN UPPER [None]
  - ABDOMINAL SYMPTOM [None]
  - ACUTE SINUSITIS [None]
  - ARTHRITIS [None]
  - BLADDER DISORDER [None]
  - BLOOD ALKALINE PHOSPHATASE INCREASED [None]
  - BREAST CALCIFICATIONS [None]
  - BREAST CANCER [None]
  - BREAST CANCER STAGE I [None]
  - BREAST MASS [None]
  - BRONCHITIS [None]
  - BRONCHOSPASM [None]
  - BURSITIS [None]
  - CARDIAC DISORDER [None]
  - CHEMOTHERAPY [None]
  - CHOLECYSTECTOMY [None]
  - CHOLECYSTITIS CHRONIC [None]
  - CYSTOCELE [None]
  - DEPRESSION [None]
  - DYSPHAGIA [None]
  - FALL [None]
  - FIBROCYSTIC BREAST DISEASE [None]
  - GAMMA-GLUTAMYLTRANSFERASE INCREASED [None]
  - HAEMORRHOIDS [None]
  - HEADACHE [None]
  - HEART RATE IRREGULAR [None]
  - HEPATIC ENZYME INCREASED [None]
  - HEPATIC STEATOSIS [None]
  - HEPATITIS A ANTIBODY POSITIVE [None]
  - HYPERTENSION [None]
  - INTRADUCTAL PAPILLOMA OF BREAST [None]
  - MAMMARY DUCT ECTASIA [None]
  - MIGRAINE [None]
  - MODIFIED RADICAL MASTECTOMY [None]
  - MUSCULOSKELETAL PAIN [None]
  - NERVE BLOCK [None]
  - NIPPLE EXUDATE BLOODY [None]
  - OESTROGEN RECEPTOR ASSAY POSITIVE [None]
  - OMENTECTOMY [None]
  - OSTEOARTHRITIS [None]
  - OSTEOPOROSIS [None]
  - OVARIAN CANCER [None]
  - OVARIAN CYST [None]
  - PERIARTHRITIS [None]
  - POSTMENOPAUSE [None]
  - PROGESTERONE RECEPTOR ASSAY POSITIVE [None]
  - SALPINGO-OOPHORECTOMY BILATERAL [None]
  - SCIATICA [None]
  - SEBORRHOEIC KERATOSIS [None]
  - SINUS HEADACHE [None]
  - SPINAL DISORDER [None]
  - TEMPOROMANDIBULAR JOINT SYNDROME [None]
  - URINARY INCONTINENCE [None]
  - VULVOVAGINAL PAIN [None]
